FAERS Safety Report 4382189-6 (Version None)
Quarter: 2004Q2

REPORT INFORMATION
  Report Type: 
  Country: None (occurrence: None)
  Receive Date: 20040615
  Receipt Date: 20040602
  Transmission Date: 20050107
  Serious: Yes (Other)
  Sender: FDA-Public Use
  Company Number: 2004038288

PATIENT
  Sex: Female

DRUGS (1)
  1. ZOLOFT [Suspect]
     Indication: ILL-DEFINED DISORDER

REACTIONS (5)
  - DENTAL CARIES [None]
  - GINGIVAL DISORDER [None]
  - THERAPEUTIC AGENT TOXICITY [None]
  - TOOTH DISORDER [None]
  - TOOTH LOSS [None]
